FAERS Safety Report 18575075 (Version 1)
Quarter: 2020Q4

REPORT INFORMATION
  Report Type: Spontaneous
  Country: US (occurrence: US)
  Receive Date: 20201202
  Receipt Date: 20201202
  Transmission Date: 20210114
  Serious: Yes (Hospitalization)
  Sender: FDA-Public Use
  Company Number: None

PATIENT
  Age: 61 Year
  Sex: Male

DRUGS (1)
  1. METHYLPREDNISOLONE (METHYLPREDNISOLONE 4MG TAB DOSEPAK, 21) [Suspect]
     Active Substance: METHYLPREDNISOLONE
     Indication: PAIN
     Dates: start: 20200918, end: 20200920

REACTIONS (2)
  - Hyperglycaemia [None]
  - Hypertension [None]

NARRATIVE: CASE EVENT DATE: 20200920
